FAERS Safety Report 11204142 (Version 1)
Quarter: 2015Q2

REPORT INFORMATION
  Report Type: Report from Study
  Country: BR (occurrence: BR)
  Receive Date: 20150619
  Receipt Date: 20150619
  Transmission Date: 20150821
  Serious: Yes (Death, Hospitalization)
  Sender: FDA-Public Use
  Company Number: PHHY2014BR092327

PATIENT
  Age: 59 Year
  Sex: Female
  Weight: 35 kg

DRUGS (5)
  1. FLORATIL [Concomitant]
     Indication: GASTROINTESTINAL DISORDER
     Dosage: 1 DF, QD (IN THE MORNING)
     Route: 065
     Dates: start: 201404, end: 201405
  2. BIO FLORA [Concomitant]
     Indication: GASTROINTESTINAL DISORDER
     Dosage: 1 DF, QD
     Route: 065
     Dates: start: 201407
  3. INSULINA [Concomitant]
     Active Substance: INSULIN NOS
     Indication: DIABETES MELLITUS
     Dosage: 1 DF (APPLICATION), QD
     Route: 065
  4. GLIMEPIRIDA [Concomitant]
     Active Substance: GLIMEPIRIDE
     Indication: DIABETES MELLITUS
     Dosage: 1 DF, QD
     Route: 065
     Dates: start: 2010
  5. SANDOSTATIN LAR DEPOT [Suspect]
     Active Substance: OCTREOTIDE ACETATE
     Indication: NEUROENDOCRINE TUMOUR
     Dosage: 1 DF, QMO
     Route: 065
     Dates: start: 20100330, end: 201412

REACTIONS (14)
  - Diarrhoea [Recovered/Resolved]
  - Asthenia [Unknown]
  - Malaise [Recovering/Resolving]
  - Speech disorder [Unknown]
  - Weight increased [Recovering/Resolving]
  - Vomiting [Recovering/Resolving]
  - Hearing impaired [Recovered/Resolved]
  - Fatigue [Recovering/Resolving]
  - Death [Fatal]
  - Diarrhoea [Recovering/Resolving]
  - Confusional state [Unknown]
  - Oral pain [Unknown]
  - Weight decreased [Not Recovered/Not Resolved]
  - Dysacusis [Recovered/Resolved]

NARRATIVE: CASE EVENT DATE: 201403
